FAERS Safety Report 25812420 (Version 2)
Quarter: 2025Q3

REPORT INFORMATION
  Report Type: Spontaneous
  Country: ZM (occurrence: ZM)
  Receive Date: 20250917
  Receipt Date: 20250930
  Transmission Date: 20251020
  Serious: Yes (Other)
  Sender: ALKEM
  Company Number: None

PATIENT
  Age: 70 Year
  Sex: Male

DRUGS (15)
  1. CEFUROXIME AXETIL [Suspect]
     Active Substance: CEFUROXIME AXETIL
     Indication: Product used for unknown indication
     Dosage: 2 GRAM, BID
     Route: 042
     Dates: start: 20240302
  2. CEFTRIAXONE [Concomitant]
     Active Substance: CEFTRIAXONE
     Indication: Product used for unknown indication
     Dosage: UNK, QD
     Route: 042
  3. CLOXACILLIN [Concomitant]
     Active Substance: CLOXACILLIN
     Indication: Product used for unknown indication
     Dosage: 500 MILLIGRAM, QID
     Route: 048
     Dates: start: 20240217
  4. GLYBURIDE [Concomitant]
     Active Substance: GLYBURIDE
     Indication: Product used for unknown indication
     Dosage: 5 MILLIGRAM, QD
     Route: 065
     Dates: start: 20240217
  5. GLYBURIDE [Concomitant]
     Active Substance: GLYBURIDE
     Route: 065
  6. ENALAPRIL [Concomitant]
     Active Substance: ENALAPRIL
     Indication: Product used for unknown indication
     Route: 065
  7. INSULIN NOS [Concomitant]
     Active Substance: INSULIN NOS
     Indication: Diabetic ketoacidosis
     Route: 058
     Dates: start: 202402
  8. INSULIN NOS [Concomitant]
     Active Substance: INSULIN NOS
     Route: 058
     Dates: start: 20240306
  9. INSULIN NOS [Concomitant]
     Active Substance: INSULIN NOS
     Route: 065
  10. Insulin soluble [Concomitant]
     Indication: Diabetic ketoacidosis
     Route: 065
     Dates: start: 202402
  11. METFORMIN [Concomitant]
     Active Substance: METFORMIN HYDROCHLORIDE
     Indication: Product used for unknown indication
     Dosage: 500 MILLIGRAM, QD
     Route: 065
     Dates: start: 20240217
  12. MODURETIC 5-50 [Concomitant]
     Active Substance: AMILORIDE HYDROCHLORIDE\HYDROCHLOROTHIAZIDE
     Indication: Product used for unknown indication
     Route: 065
  13. NIFEDIPINE [Concomitant]
     Active Substance: NIFEDIPINE
     Indication: Product used for unknown indication
     Route: 065
  14. SODIUM CHLORIDE [Concomitant]
     Active Substance: SODIUM CHLORIDE
     Indication: Diabetic ketoacidosis
     Dosage: 3 LITER, BID
     Route: 042
     Dates: start: 202402
  15. VITAMIN B COMPLEX [Concomitant]
     Active Substance: CYANOCOBALAMIN\DEXPANTHENOL\NIACINAMIDE\PYRIDOXINE HYDROCHLORIDE\RIBOFLAVIN 5^-PHOSPHATE SODIUM\THIA
     Indication: Product used for unknown indication
     Dosage: 1 DOSAGE FORM, QD
     Route: 065
     Dates: start: 20240217

REACTIONS (2)
  - Renal failure [Unknown]
  - Acute kidney injury [Unknown]
